FAERS Safety Report 4420021-2 (Version None)
Quarter: 2004Q3

REPORT INFORMATION
  Report Type: 
  Country: None (occurrence: None)
  Receive Date: 20040804
  Receipt Date: 20040720
  Transmission Date: 20050211
  Serious: Yes (Hospitalization)
  Sender: FDA-Public Use
  Company Number: 237477

PATIENT
  Age: 6 Year
  Sex: Male
  Weight: 18.2 kg

DRUGS (1)
  1. NORDITROPIN [Suspect]
     Indication: GROWTH HORMONE DEFICIENCY
     Dates: start: 20000601

REACTIONS (3)
  - BLOOD IMMUNOGLOBULIN A INCREASED [None]
  - BLOOD LACTATE DEHYDROGENASE INCREASED [None]
  - DERMATOMYOSITIS [None]
